FAERS Safety Report 10050889 (Version 1)
Quarter: 2014Q1

REPORT INFORMATION
  Report Type: Spontaneous
  Country: US (occurrence: None)
  Receive Date: 20140328
  Receipt Date: 20140328
  Transmission Date: 20141002
  Serious: Yes (Death)
  Sender: FDA-Public Use
  Company Number: INS201403-000019

PATIENT
  Sex: Female

DRUGS (1)
  1. SUBSYS [Suspect]
     Indication: INTERVERTEBRAL DISC DEGENERATION
     Dates: start: 201306

REACTIONS (1)
  - Death [None]
